FAERS Safety Report 5745845-0 (Version None)
Quarter: 2008Q2

REPORT INFORMATION
  Report Type: 
  Country: None (occurrence: None)
  Receive Date: 20080521
  Receipt Date: 20080512
  Transmission Date: 20081010
  Serious: Yes (Other)
  Sender: FDA-Public Use
  Company Number: US-AMGEN-QUU277307

PATIENT
  Sex: Male

DRUGS (8)
  1. ENBREL [Suspect]
     Indication: PSORIASIS
     Dates: start: 20050501, end: 20080430
  2. ENBREL [Suspect]
     Indication: PSORIATIC ARTHROPATHY
  3. HYDROCHLOROTHIAZIDE [Concomitant]
  4. TERAZOSIN HCL [Concomitant]
  5. ENALAPRIL MALEATE [Concomitant]
  6. DOVONEX [Concomitant]
  7. ATENOLOL [Concomitant]
  8. METHOTREXATE [Concomitant]

REACTIONS (5)
  - ECZEMA [None]
  - INFLUENZA LIKE ILLNESS [None]
  - NECROTISING FASCIITIS [None]
  - PYREXIA [None]
  - WOUND SECRETION [None]
